FAERS Safety Report 16183946 (Version 3)
Quarter: 2019Q4

REPORT INFORMATION
  Report Type: Spontaneous
  Country: TW (occurrence: TW)
  Receive Date: 20190411
  Receipt Date: 20191105
  Transmission Date: 20200122
  Serious: Yes (Death, Life-Threatening, Other)
  Sender: FDA-Public Use
  Company Number: TW-STRIDES ARCOLAB LIMITED-2019SP003007

PATIENT
  Age: 75 Year
  Sex: Male

DRUGS (4)
  1. CEFOXITIN [Concomitant]
     Active Substance: CEFOXITIN SODIUM
     Indication: CHOLANGITIS ACUTE
     Dosage: UNK
     Route: 065
  2. RANITIDINE. [Suspect]
     Active Substance: RANITIDINE
     Indication: PROPHYLAXIS
  3. RANITIDINE. [Suspect]
     Active Substance: RANITIDINE
     Indication: PEPTIC ULCER
     Dosage: UNK, INJECTION (IN SLOW PUSH MODE )
     Route: 042
  4. RANITIDINE. [Suspect]
     Active Substance: RANITIDINE
     Indication: STRESS ULCER

REACTIONS (8)
  - Dyspnoea [Unknown]
  - Anaphylactic reaction [Fatal]
  - Circulatory collapse [Fatal]
  - Erythema [Unknown]
  - Irritability [Unknown]
  - Depressed level of consciousness [Unknown]
  - Pruritus [Unknown]
  - Cold sweat [Unknown]
